FAERS Safety Report 10280560 (Version 1)
Quarter: 2014Q3

REPORT INFORMATION
  Report Type: Report from Study
  Country: US (occurrence: US)
  Receive Date: 20140707
  Receipt Date: 20140707
  Transmission Date: 20150326
  Serious: Yes (Hospitalization)
  Sender: FDA-Public Use
  Company Number: PHEH2014US013353

PATIENT
  Sex: Male

DRUGS (1)
  1. GILENYA [Suspect]
     Active Substance: FINGOLIMOD HYDROCHLORIDE
     Indication: MULTIPLE SCLEROSIS
     Dosage: 0.5 MG, QD
     Route: 048
     Dates: start: 20120112, end: 201402

REACTIONS (25)
  - Tenderness [Unknown]
  - Paraesthesia [Unknown]
  - Balance disorder [Unknown]
  - Bowel movement irregularity [Unknown]
  - Pain in extremity [Unknown]
  - Blister [Unknown]
  - Muscle spasms [Unknown]
  - Knee deformity [Unknown]
  - Hyperreflexia [Unknown]
  - Multiple sclerosis [Unknown]
  - Bladder disorder [Unknown]
  - Muscle spasticity [Unknown]
  - Hypertonia [Unknown]
  - Groin pain [Unknown]
  - Bronchitis [Unknown]
  - Back pain [Unknown]
  - Lower limb fracture [Unknown]
  - Gait spastic [Unknown]
  - Gait disturbance [Unknown]
  - Fall [Unknown]
  - Migraine [Unknown]
  - Spinal osteoarthritis [Unknown]
  - Muscular weakness [Unknown]
  - Hypoaesthesia [Unknown]
  - Limb discomfort [Unknown]
